FAERS Safety Report 6852979-6 (Version None)
Quarter: 2010Q3

REPORT INFORMATION
  Report Type: 
  Country: None (occurrence: None)
  Receive Date: 20100717
  Receipt Date: 20071128
  Transmission Date: 20110219
  Serious: No
  Sender: FDA-Public Use
  Company Number: US-PFIZER INC-2007102107

PATIENT
  Sex: Female

DRUGS (1)
  1. CHANTIX [Suspect]
     Dates: start: 20071015

REACTIONS (4)
  - LIVER DISORDER [None]
  - THYROID DISORDER [None]
  - TREMOR [None]
  - VISION BLURRED [None]
